FAERS Safety Report 18251013 (Version 1)
Quarter: 2020Q3

REPORT INFORMATION
  Report Type: Spontaneous
  Country: JP (occurrence: JP)
  Receive Date: 20200909
  Receipt Date: 20200909
  Transmission Date: 20201103
  Serious: Yes (Death, Hospitalization)
  Sender: FDA-Public Use
  Company Number: JP-JNJFOC-A-US2019-185843

PATIENT
  Age: 60 Year
  Sex: Male

DRUGS (20)
  1. URSODEOXYCHOLIC ACID [Concomitant]
     Active Substance: URSODIOL
     Dates: end: 20190129
  2. TRAMAL [Concomitant]
     Active Substance: TRAMADOL
     Dates: end: 20190129
  3. PIARLE [Concomitant]
     Active Substance: LACTULOSE
     Dates: end: 20180529
  4. AMINOVACT [Concomitant]
     Active Substance: ISOLEUCINE\LEUCINE\VALINE
     Dates: start: 20180530, end: 20190129
  5. RIFAXIMIN. [Concomitant]
     Active Substance: RIFAXIMIN
     Dates: end: 20190129
  6. VOLIBRIS [Concomitant]
     Active Substance: AMBRISENTAN
     Dates: start: 20181212, end: 20190118
  7. VENTAVIS [Suspect]
     Active Substance: ILOPROST
     Route: 055
     Dates: start: 20171101, end: 20190129
  8. VENTAVIS [Suspect]
     Active Substance: ILOPROST
     Route: 055
     Dates: start: 20171101, end: 20190129
  9. VENTAVIS [Suspect]
     Active Substance: ILOPROST
     Indication: PULMONARY ARTERIAL HYPERTENSION
     Dosage: 10 MCG, QID
     Route: 055
     Dates: start: 20171101, end: 20190129
  10. TREPROSTINIL. [Suspect]
     Active Substance: TREPROSTINIL
     Dates: start: 20180618, end: 20180707
  11. FUROSEMIDE. [Concomitant]
     Active Substance: FUROSEMIDE
     Dates: end: 20180708
  12. LYRICA [Concomitant]
     Active Substance: PREGABALIN
     Dates: end: 20190129
  13. TORASEMIDE [Concomitant]
     Active Substance: TORSEMIDE
     Dates: start: 20180709, end: 20190127
  14. ADCIRCA [Suspect]
     Active Substance: TADALAFIL
     Route: 048
     Dates: start: 20180615, end: 20180617
  15. LIVACT                             /00847901/ [Concomitant]
     Active Substance: ISOLEUCINE\LEUCINE\VALINE
     Dates: end: 20180529
  16. MONILAC [Concomitant]
     Active Substance: LACTULOSE
     Dates: start: 20180530, end: 20190129
  17. TOLVAPTAN [Concomitant]
     Active Substance: TOLVAPTAN
     Dates: start: 20180629, end: 20190129
  18. SPIRONOLACTONE. [Concomitant]
     Active Substance: SPIRONOLACTONE
     Dates: end: 20180708
  19. THYRADIN?S [Concomitant]
     Active Substance: LEVOTHYROXINE
     Dates: end: 20190129
  20. OXYGEN. [Concomitant]
     Active Substance: OXYGEN
     Dates: start: 20180711, end: 20190130

REACTIONS (2)
  - Hepatic failure [Fatal]
  - Fluid retention [Recovering/Resolving]

NARRATIVE: CASE EVENT DATE: 20180617
